FAERS Safety Report 9693310 (Version 4)
Quarter: 2014Q3

REPORT INFORMATION
  Report Type: Report from Study
  Country: CL (occurrence: CL)
  Receive Date: 20131118
  Receipt Date: 20140801
  Transmission Date: 20150326
  Serious: Yes (Other)
  Sender: FDA-Public Use
  Company Number: CL-ROCHE-1264536

PATIENT
  Age: 61 Year
  Sex: Female
  Weight: 82 kg

DRUGS (4)
  1. HERCEPTIN [Suspect]
     Active Substance: TRASTUZUMAB
     Indication: BREAST CANCER
     Route: 065
     Dates: start: 20140515
  2. XELODA [Suspect]
     Active Substance: CAPECITABINE
     Indication: BREAST CANCER
     Dosage: 14-DAY-CYCLE
     Route: 048
     Dates: start: 20130513, end: 20131108
  3. XELODA [Suspect]
     Active Substance: CAPECITABINE
     Dosage: 14-DAY-CYCLE
     Route: 048
     Dates: start: 20130513
  4. ALENDRONIC ACID [Suspect]
     Active Substance: ALENDRONIC ACID
     Indication: BREAST CANCER
     Route: 042
     Dates: start: 20131206

REACTIONS (11)
  - Dehydration [Recovered/Resolved]
  - Infection [Not Recovered/Not Resolved]
  - Blood pressure increased [Recovering/Resolving]
  - Vomiting [Recovered/Resolved]
  - Diarrhoea [Recovered/Resolved]
  - Myalgia [Recovered/Resolved]
  - Blood pressure increased [Recovered/Resolved]
  - Metastases to bone [Not Recovered/Not Resolved]
  - Viral infection [Not Recovered/Not Resolved]
  - Pyrexia [Recovered/Resolved]
  - Vomiting [Recovered/Resolved]

NARRATIVE: CASE EVENT DATE: 20130817
